FAERS Safety Report 22220064 (Version 6)
Quarter: 2023Q2

REPORT INFORMATION
  Report Type: Report from Study
  Country: US (occurrence: US)
  Receive Date: 20230417
  Receipt Date: 20230621
  Transmission Date: 20230721
  Serious: Yes (Hospitalization, Other)
  Sender: FDA-Public Use
  Company Number: US-JNJFOC-20221026177

PATIENT
  Age: 75 Year
  Sex: Female
  Weight: 85.5 kg

DRUGS (7)
  1. EPOPROSTENOL SODIUM [Suspect]
     Active Substance: EPOPROSTENOL SODIUM
     Indication: Pulmonary arterial hypertension
     Dosage: VELETRI 1.5MG VIAL INTRAVENOUS CONTINUOUS
     Route: 042
  2. EPOPROSTENOL SODIUM [Suspect]
     Active Substance: EPOPROSTENOL SODIUM
     Dosage: 18 NG/KG/MIN
     Route: 042
  3. EPOPROSTENOL SODIUM [Suspect]
     Active Substance: EPOPROSTENOL SODIUM
     Route: 042
  4. EPOPROSTENOL SODIUM [Suspect]
     Active Substance: EPOPROSTENOL SODIUM
     Route: 042
  5. OXYGEN [Concomitant]
     Active Substance: OXYGEN
  6. COUMADIN [Concomitant]
     Active Substance: WARFARIN SODIUM
  7. DILTIAZEM [Concomitant]
     Active Substance: DILTIAZEM

REACTIONS (17)
  - Sarcoidosis [Recovering/Resolving]
  - Heart valve stenosis [Recovering/Resolving]
  - Mechanical ventilation [Unknown]
  - COVID-19 [Unknown]
  - Paralysis [Unknown]
  - Tooth abscess [Recovered/Resolved]
  - Fatigue [Recovering/Resolving]
  - Swelling face [Recovered/Resolved]
  - Bradykinesia [Unknown]
  - Gingivitis [Recovered/Resolved]
  - Insomnia [Unknown]
  - Peripheral swelling [Recovering/Resolving]
  - Asthenia [Unknown]
  - Pain [Not Recovered/Not Resolved]
  - Memory impairment [Unknown]
  - Tremor [Unknown]
  - Renal disorder [Unknown]

NARRATIVE: CASE EVENT DATE: 20210101
